FAERS Safety Report 7409393-4 (Version None)
Quarter: 2011Q2

REPORT INFORMATION
  Report Type: 
  Country: None (occurrence: None)
  Receive Date: 20110412
  Receipt Date: 20101015
  Transmission Date: 20111010
  Serious: Yes (Hospitalization, Other)
  Sender: FDA-Public Use
  Company Number: US-BAYER-201010036NA

PATIENT
  Age: 24 Year
  Sex: Female
  Weight: 99.32 kg

DRUGS (14)
  1. LEVAQUIN [Concomitant]
     Dosage: DAILY DOSE 750 MG
  2. ALBUTEROL [Concomitant]
  3. LOVENOX [Concomitant]
     Dosage: 40 MG, UNK
  4. ACETAMINOPHEN AND HYDROCODONE BITARTRATE [Concomitant]
  5. PROMETHAZINE [Concomitant]
     Route: 048
  6. YAZ [Suspect]
     Indication: PRODUCT USED FOR UNKNOWN INDICATION
     Dosage: UNK
     Route: 048
     Dates: start: 20060101, end: 20070101
  7. FERROUS SULFATE TAB [Concomitant]
     Dosage: UNK
  8. YASMIN [Suspect]
     Indication: PRODUCT USED FOR UNKNOWN INDICATION
     Route: 048
  9. PROPOXYPHENE NAPSYLATE W/ ACETAMINOPHEN [Concomitant]
     Route: 048
  10. ADVAIR DISKUS 100/50 [Concomitant]
     Indication: ASTHMA
  11. NEXIUM [Concomitant]
     Indication: GASTROOESOPHAGEAL REFLUX DISEASE
     Dosage: DAILY DOSE 40 MG
     Route: 048
  12. LOVENOX [Concomitant]
     Dosage: 120 MG, UNK
  13. COUMADIN [Concomitant]
     Dosage: 7.5 MG, UNK
  14. DOXYCYCLINE HYCLATE [Concomitant]
     Dosage: UNK UNK, BID
     Route: 048

REACTIONS (2)
  - INJURY [None]
  - PULMONARY EMBOLISM [None]
